FAERS Safety Report 4864075-8 (Version None)
Quarter: 2005Q4

REPORT INFORMATION
  Report Type: 
  Country: None (occurrence: None)
  Receive Date: 20051219
  Receipt Date: 20051205
  Transmission Date: 20060501
  Serious: Yes (Other)
  Sender: FDA-Public Use
  Company Number: 2005165535

PATIENT
  Age: 23 Year
  Sex: Female
  Weight: 93.5 kg

DRUGS (2)
  1. MEDROXYPROGESTERONE [Suspect]
     Indication: CONTRACEPTION
     Dosage: SEE IMAGE
     Route: 030
     Dates: start: 19990101, end: 19990101
  2. MEDROXYPROGESTERONE [Suspect]
     Indication: CONTRACEPTION
     Dosage: SEE IMAGE
     Route: 030
     Dates: start: 20051117, end: 20051117

REACTIONS (3)
  - SEASONAL ALLERGY [None]
  - TACHYCARDIA [None]
  - URTICARIA [None]
